FAERS Safety Report 15652882 (Version 1)
Quarter: 2018Q4

REPORT INFORMATION
  Report Type: Spontaneous
  Country: DE (occurrence: DE)
  Receive Date: 20181123
  Receipt Date: 20181123
  Transmission Date: 20190205
  Serious: Yes (Hospitalization)
  Sender: FDA-Public Use
  Company Number: PHHY2018DE159099

PATIENT
  Age: 11 Year
  Sex: Female

DRUGS (2)
  1. GRAMICIDIN+NEOMYCIN+POLYMYXIN B SANDOZ [Suspect]
     Active Substance: GRAMICIDIN\NEOMYCIN\POLYMYXIN
     Indication: INFECTIVE KERATITIS
     Route: 065
  2. LEVOFLOXACIN. [Suspect]
     Active Substance: LEVOFLOXACIN
     Indication: INFECTIVE KERATITIS
     Route: 065

REACTIONS (3)
  - Staphylococcal infection [Recovering/Resolving]
  - Infective keratitis [Recovering/Resolving]
  - Disease progression [Recovering/Resolving]
